FAERS Safety Report 7788475-1 (Version None)
Quarter: 2011Q3

REPORT INFORMATION
  Report Type: 
  Country: None (occurrence: None)
  Receive Date: 20110928
  Receipt Date: 20110921
  Transmission Date: 20111222
  Serious: Yes (Hospitalization)
  Sender: FDA-Public Use
  Company Number: 2011SP044739

PATIENT
  Sex: Female

DRUGS (1)
  1. NUVARING [Suspect]
     Indication: CONTRACEPTION
     Dosage: 1 DF

REACTIONS (3)
  - MATERNAL EXPOSURE DURING PREGNANCY [None]
  - PREMATURE LABOUR [None]
  - PREGNANCY WITH CONTRACEPTIVE DEVICE [None]
